FAERS Safety Report 11275280 (Version 2)
Quarter: 2015Q3

REPORT INFORMATION
  Report Type: Report from Study
  Country: NL (occurrence: NL)
  Receive Date: 20150716
  Receipt Date: 20150827
  Transmission Date: 20151125
  Serious: Yes (Hospitalization, Other)
  Sender: FDA-Public Use
  Company Number: NL-BRISTOL-MYERS SQUIBB COMPANY-BMS-2015-045517

PATIENT
  Age: 66 Year
  Sex: Male

DRUGS (1)
  1. BELATACEPT [Suspect]
     Active Substance: BELATACEPT
     Indication: RENAL TRANSPLANT
     Route: 065

REACTIONS (2)
  - Inguinal hernia repair [Recovered/Resolved]
  - Inguinal hernia [Unknown]

NARRATIVE: CASE EVENT DATE: 20150528
